FAERS Safety Report 4731849-3 (Version None)
Quarter: 2005Q3

REPORT INFORMATION
  Report Type: 
  Country: None (occurrence: None)
  Receive Date: 20050725
  Receipt Date: 20050201
  Transmission Date: 20060218
  Serious: Yes (Life-Threatening, Hospitalization)
  Sender: FDA-Public Use
  Company Number: WAES 0502USA00153

PATIENT
  Age: 61 Year
  Sex: Female

DRUGS (2)
  1. VIOXX [Suspect]
     Dosage: UNK/UNK/PO
     Route: 048
  2. [THERAPY UNSPECIFIED] [Concomitant]

REACTIONS (3)
  - BLOOD SODIUM DECREASED [None]
  - HYPERTENSION [None]
  - VOMITING [None]
